FAERS Safety Report 5878237-4 (Version None)
Quarter: 2008Q3

REPORT INFORMATION
  Report Type: 
  Country: None (occurrence: None)
  Receive Date: 20080911
  Receipt Date: 20080901
  Transmission Date: 20090109
  Serious: Yes (Hospitalization)
  Sender: FDA-Public Use
  Company Number: DE-ABBOTT-08P-062-0458998-01

PATIENT
  Sex: Male
  Weight: 105 kg

DRUGS (15)
  1. HUMIRA [Suspect]
     Indication: PSORIASIS
     Route: 058
     Dates: start: 20071221, end: 20080404
  2. DAIVOBET [Suspect]
     Indication: PSORIASIS
     Route: 061
     Dates: start: 20071221, end: 20080404
  3. DICLOFENAC DIETHYLAMINE [Concomitant]
     Indication: PSORIATIC ARTHROPATHY
     Dates: start: 20080502
  4. CYCLOSPORINE [Concomitant]
     Indication: PSORIASIS
     Dates: start: 20080423, end: 20080515
  5. CLOBETASOL PROPIONATE [Concomitant]
     Indication: PSORIASIS
     Dates: start: 20080515, end: 20080518
  6. ADVANTAN CREME [Concomitant]
     Indication: PSORIASIS
     Dates: start: 20080526
  7. ADVANTAN CREME [Concomitant]
     Dates: start: 20080424
  8. CALCIPOTRIENE [Concomitant]
     Indication: PSORIASIS
     Dates: start: 20080519, end: 20080601
  9. BETAMETHASONE DIPROPIONATE [Concomitant]
     Indication: PSORIASIS
     Dates: start: 20080519, end: 20080520
  10. ECURAL CREME [Concomitant]
     Indication: PSORIASIS
     Dates: start: 20080519, end: 20080601
  11. ECURAL CREME [Concomitant]
     Dates: start: 20080424
  12. ETANERCEPT [Concomitant]
     Indication: PSORIASIS
     Dates: start: 20080521
  13. CYCLOSPORINE [Concomitant]
     Dates: start: 20080423, end: 20080515
  14. COMMERCIAL HUMIRA [Concomitant]
     Indication: PSORIASIS
     Route: 058
     Dates: start: 20080429, end: 20080514
  15. PREDNISOLONE SODIUM PHOSPHATE [Concomitant]
     Indication: DERMATITIS EXFOLIATIVE
     Dates: start: 20080515, end: 20080517

REACTIONS (1)
  - DERMATITIS EXFOLIATIVE [None]
